FAERS Safety Report 23170923 (Version 1)
Quarter: 2023Q4

REPORT INFORMATION
  Report Type: Spontaneous
  Country: US (occurrence: None)
  Receive Date: 20231109
  Receipt Date: 20231109
  Transmission Date: 20240110
  Serious: Yes (Other)
  Sender: FDA-Public Use
  Company Number: None

PATIENT
  Age: 67 Year
  Sex: Female
  Weight: 69.75 kg

DRUGS (10)
  1. MAGNESIUM\POTASSIUM\SODIUM [Suspect]
     Active Substance: MAGNESIUM\POTASSIUM\SODIUM
     Indication: Colonoscopy
     Dosage: OTHER QUANTITY : 1 BOTTLE;?FREQUENCY : TWICE A DAY;?
     Route: 048
     Dates: start: 20231024, end: 20231025
  2. MAGNESIUM\POTASSIUM\SODIUM [Suspect]
     Active Substance: MAGNESIUM\POTASSIUM\SODIUM
     Indication: Bowel preparation
  3. Levotyhroxine 88mcg daily [Concomitant]
  4. Cyanocobalamin injection once a month [Concomitant]
  5. estradiol ointment x2 weekly [Concomitant]
  6. clobetasol propionate x3 weekly applied applied topically [Concomitant]
  7. CALCIUM [Concomitant]
     Active Substance: CALCIUM
  8. VITAMIN D3 [Concomitant]
     Active Substance: CHOLECALCIFEROL
  9. VITAMIN B12 [Concomitant]
     Active Substance: CYANOCOBALAMIN
  10. Vegetarian ^fish oil^ [Concomitant]

REACTIONS (6)
  - Poor quality sleep [None]
  - Asthenia [None]
  - Fatigue [None]
  - Anal incontinence [None]
  - Emotional distress [None]
  - Frequent bowel movements [None]

NARRATIVE: CASE EVENT DATE: 20231024
